FAERS Safety Report 13599152 (Version 1)
Quarter: 2017Q2

REPORT INFORMATION
  Report Type: Spontaneous
  Country: NL (occurrence: NL)
  Receive Date: 20170531
  Receipt Date: 20170531
  Transmission Date: 20170830
  Serious: Yes (Disabling, Other)
  Sender: FDA-Public Use
  Company Number: NL-009507513-1705NLD013882

PATIENT
  Age: 54 Year
  Sex: Female

DRUGS (2)
  1. INEGY [Suspect]
     Active Substance: EZETIMIBE\SIMVASTATIN
     Dosage: UNK
     Route: 048
     Dates: start: 2013
  2. SIMVASTATIN. [Suspect]
     Active Substance: SIMVASTATIN
     Dosage: UNK
     Route: 048
     Dates: start: 2011

REACTIONS (6)
  - Breast cancer [Unknown]
  - Fibromyalgia [Unknown]
  - Headache [Unknown]
  - Sleep disorder [Unknown]
  - Muscle disorder [Unknown]
  - Abasia [Unknown]

NARRATIVE: CASE EVENT DATE: 2011
